FAERS Safety Report 23523414 (Version 1)
Quarter: 2024Q1

REPORT INFORMATION
  Report Type: Spontaneous
  Country: FR (occurrence: FR)
  Receive Date: 20240214
  Receipt Date: 20240214
  Transmission Date: 20240409
  Serious: Yes (Hospitalization)
  Sender: FDA-Public Use
  Company Number: FR-AFSSAPS-LL2023001857

PATIENT
  Age: 17 Year
  Sex: Male
  Weight: 59 kg

DRUGS (2)
  1. IBUPROFEN [Suspect]
     Active Substance: IBUPROFEN
     Indication: Dermatitis papillaris capillitii
     Dosage: UNK
     Route: 048
     Dates: start: 20230817, end: 20230818
  2. LYMECYCLINE [Suspect]
     Active Substance: LYMECYCLINE
     Indication: Dermatitis papillaris capillitii
     Dosage: 300MG
     Route: 048
     Dates: start: 20230818, end: 20230902

REACTIONS (1)
  - Stevens-Johnson syndrome [Recovering/Resolving]

NARRATIVE: CASE EVENT DATE: 20230903
